FAERS Safety Report 21224076 (Version 1)
Quarter: 2022Q3

REPORT INFORMATION
  Report Type: Spontaneous
  Country: US (occurrence: US)
  Receive Date: 20220817
  Receipt Date: 20220817
  Transmission Date: 20221026
  Serious: No
  Sender: FDA-Public Use
  Company Number: US-SA-2022MK000128

PATIENT
  Age: 68 Year
  Sex: Female
  Weight: 44.038 kg

DRUGS (4)
  1. AFREZZA [Suspect]
     Active Substance: INSULIN HUMAN
     Indication: Type 2 diabetes mellitus
     Dosage: 12 UNITS BEFORE LUNCH
     Dates: start: 202204
  2. AFREZZA [Suspect]
     Active Substance: INSULIN HUMAN
     Dosage: 12 UNITS BEFORE LUNCH
     Dates: start: 202204
  3. AFREZZA [Suspect]
     Active Substance: INSULIN HUMAN
     Dosage: 12 UNITS BEFORE LUNCH
     Dates: start: 202204
  4. SYNJARDY [Concomitant]
     Active Substance: EMPAGLIFLOZIN\METFORMIN HYDROCHLORIDE
     Indication: Type 2 diabetes mellitus

REACTIONS (1)
  - Cough [Unknown]
